FAERS Safety Report 6376064-5 (Version None)
Quarter: 2009Q3

REPORT INFORMATION
  Report Type: 
  Country: None (occurrence: None)
  Receive Date: 20090921
  Receipt Date: 20090908
  Transmission Date: 20100115
  Serious: Yes (Hospitalization)
  Sender: FDA-Public Use
  Company Number: 230059J09BRA

PATIENT
  Age: 52 Year
  Sex: Female

DRUGS (3)
  1. REBIF [Suspect]
     Indication: MULTIPLE SCLEROSIS
     Dosage: 22 MCG, 3 IN 1 WEEKS
     Dates: start: 20080202
  2. PARACETAMOL (PARACETAMOL) [Concomitant]
  3. ADVIL [Concomitant]

REACTIONS (8)
  - AMNESIA [None]
  - CHILLS [None]
  - HEADACHE [None]
  - HYPOAESTHESIA [None]
  - INJECTION SITE ANAESTHESIA [None]
  - MUSCLE SPASMS [None]
  - MUSCULOSKELETAL STIFFNESS [None]
  - PAIN IN EXTREMITY [None]
